FAERS Safety Report 23945810 (Version 2)
Quarter: 2024Q2

REPORT INFORMATION
  Report Type: Spontaneous
  Country: CN (occurrence: CN)
  Receive Date: 20240606
  Receipt Date: 20240614
  Transmission Date: 20240715
  Serious: Yes (Hospitalization, Other)
  Sender: FDA-Public Use
  Company Number: CN-PFIZER INC-PV202400073593

PATIENT
  Age: 36 Year
  Sex: Male
  Weight: 81 kg

DRUGS (8)
  1. CYTARABINE [Suspect]
     Active Substance: CYTARABINE
     Indication: Acute promyelocytic leukaemia
     Dosage: 100 MG, 2X/DAY (EVERY 12 HOURS)
     Route: 041
     Dates: start: 20240509, end: 20240513
  2. IDARUBICIN HYDROCHLORIDE [Suspect]
     Active Substance: IDARUBICIN HYDROCHLORIDE
     Indication: Acute promyelocytic leukaemia
     Dosage: 10 MG, 1X/DAY
     Route: 041
     Dates: start: 20240509, end: 20240509
  3. IDARUBICIN HYDROCHLORIDE [Suspect]
     Active Substance: IDARUBICIN HYDROCHLORIDE
     Dosage: 10 MG, 1X/DAY
     Route: 041
     Dates: start: 20240510, end: 20240510
  4. IDARUBICIN HYDROCHLORIDE [Suspect]
     Active Substance: IDARUBICIN HYDROCHLORIDE
     Dosage: 20 MG, 1X/DAY
     Route: 041
     Dates: start: 20240511, end: 20240511
  5. SODIUM CHLORIDE [Concomitant]
     Active Substance: SODIUM CHLORIDE
     Indication: Vehicle solution use
     Dosage: 500 ML, 2X/DAY (EVERY 12 HOURS)
     Route: 041
     Dates: start: 20240509, end: 20240513
  6. STERILE WATER [Concomitant]
     Active Substance: WATER
     Indication: Vehicle solution use
     Dosage: 10 ML, 1X/DAY
     Route: 041
     Dates: start: 20240509, end: 20240509
  7. STERILE WATER [Concomitant]
     Active Substance: WATER
     Dosage: 10 ML, 1X/DAY
     Route: 041
     Dates: start: 20240510, end: 20240510
  8. STERILE WATER [Concomitant]
     Active Substance: WATER
     Dosage: 20 ML, 1X/DAY
     Route: 041
     Dates: start: 20240511, end: 20240511

REACTIONS (5)
  - Myelosuppression [Recovering/Resolving]
  - White blood cell count decreased [Recovered/Resolved]
  - Neutrophil count decreased [Recovered/Resolved]
  - Haemoglobin decreased [Not Recovered/Not Resolved]
  - Platelet count decreased [Recovered/Resolved]

NARRATIVE: CASE EVENT DATE: 20240521
